FAERS Safety Report 13377632 (Version 2)
Quarter: 2017Q2

REPORT INFORMATION
  Report Type: Report from Study
  Country: US (occurrence: AR)
  Receive Date: 20170328
  Receipt Date: 20170421
  Transmission Date: 20170830
  Serious: Yes (Other)
  Sender: FDA-Public Use
  Company Number: US-SUNOVION-2017SUN001274

PATIENT
  Sex: Female

DRUGS (3)
  1. SEEBRI [Suspect]
     Active Substance: GLYCOPYRRONIUM
     Indication: FIBROSIS
  2. SEEBRI [Suspect]
     Active Substance: GLYCOPYRRONIUM
     Indication: EMPHYSEMA
  3. SEEBRI [Suspect]
     Active Substance: GLYCOPYRRONIUM
     Indication: CHRONIC OBSTRUCTIVE PULMONARY DISEASE
     Dosage: UNK
     Route: 055

REACTIONS (2)
  - Product use issue [Unknown]
  - Visual acuity reduced [Not Recovered/Not Resolved]
